FAERS Safety Report 24731376 (Version 2)
Quarter: 2024Q4

REPORT INFORMATION
  Report Type: Spontaneous
  Country: US (occurrence: US)
  Receive Date: 20241213
  Receipt Date: 20241231
  Transmission Date: 20250115
  Serious: Yes (Disabling, Other)
  Sender: AMGEN
  Company Number: US-AMGEN-USASP2024240579

PATIENT
  Age: 65 Year
  Sex: Female

DRUGS (33)
  1. TEPEZZA [Suspect]
     Active Substance: TEPROTUMUMAB-TRBW
     Indication: Graves^ disease
     Dosage: UNK, Q3WK
     Route: 040
     Dates: start: 202202, end: 202208
  2. TEPEZZA [Suspect]
     Active Substance: TEPROTUMUMAB-TRBW
     Indication: Endocrine ophthalmopathy
  3. PREDNISONE [Suspect]
     Active Substance: PREDNISONE
     Indication: Product used for unknown indication
     Dosage: 10 MILLIGRAM, QD (4 TAB X3 DAYS THEN 3 TAB X3 DAYS THEN 2 TAB X3 DAYS THEN 1 TAB X3 DAYS)
     Route: 048
  4. ATORVASTATIN [Concomitant]
     Active Substance: ATORVASTATIN
     Dosage: 40 MILLIGRAM
     Route: 048
     Dates: start: 20150224
  5. ATORVASTATIN [Concomitant]
     Active Substance: ATORVASTATIN
     Dosage: 20 MILLIGRAM, QD
     Route: 048
  6. BUPROPION HYDROCHLORIDE [Concomitant]
     Active Substance: BUPROPION HYDROCHLORIDE
     Dosage: 150 MILLIGRAM, BID (12 HR SUSTAINED-RELEASE)
     Route: 048
     Dates: start: 20150203
  7. CALCIUM\VITAMIN D [Concomitant]
     Active Substance: CALCIUM\VITAMIN D
     Dosage: UNK
     Route: 065
  8. CARVEDILOL [Concomitant]
     Active Substance: CARVEDILOL
     Dosage: 3.125 MILLIGRAM, BID (2 TABLETS)
     Route: 048
  9. CARVEDILOL [Concomitant]
     Active Substance: CARVEDILOL
     Dosage: 6.25 MILLIGRAM, BID (2 TABS QAM, 2 TABS QPM)
     Route: 065
  10. CIPRO [Concomitant]
     Active Substance: CIPROFLOXACIN HYDROCHLORIDE
     Dosage: 500 MILLIGRAM, Q12H (1 TABLET FOR 10 DAYS)
     Route: 048
  11. CITALOPRAM [Concomitant]
     Active Substance: CITALOPRAM
     Dosage: 10 MILLIGRAM, QD
     Route: 048
     Dates: start: 20150203
  12. HYDROCHLOROTHIAZIDE [Concomitant]
     Active Substance: HYDROCHLOROTHIAZIDE
     Dosage: 25 MILLIGRAM, QD
     Route: 048
     Dates: start: 20150204
  13. HYDROCHLOROTHIAZIDE [Concomitant]
     Active Substance: HYDROCHLOROTHIAZIDE
     Dosage: 15 MILLIGRAM
     Route: 048
  14. LEVOTHYROXINE [Concomitant]
     Active Substance: LEVOTHYROXINE
     Dosage: 50 MICROGRAM
     Route: 048
     Dates: start: 20150302
  15. LEVOTHYROXINE [Concomitant]
     Active Substance: LEVOTHYROXINE
     Dosage: 100 MICROGRAM, QD (ONE TABLET IN MORNING)
     Route: 048
  16. LISINOPRIL [Concomitant]
     Active Substance: LISINOPRIL
     Dosage: 40 MILLIGRAM, QD
     Route: 048
     Dates: start: 20171210
  17. METRONIDAZOLE [Concomitant]
     Active Substance: METRONIDAZOLE
     Dosage: 500 MILLIGRAM, Q8H (FOR 10 DAYS)
     Route: 048
  18. VITAMINS [Concomitant]
     Active Substance: VITAMINS
     Dosage: UNK
     Route: 065
  19. OMEPRAZOLE [Concomitant]
     Active Substance: OMEPRAZOLE
     Dosage: 20 MILLIGRAM, QD
     Route: 048
     Dates: start: 20150204
  20. TRAZODONE [Concomitant]
     Active Substance: TRAZODONE HYDROCHLORIDE
     Dosage: 50 MILLIGRAM, QD
     Route: 048
     Dates: start: 20150203
  21. TRELEGY ELLIPTA [Concomitant]
     Active Substance: FLUTICASONE FUROATE\UMECLIDINIUM BROMIDE\VILANTEROL TRIFENATATE
     Dosage: 287.5 MICROGRAM, QD (200 MCG-62.5 MCG-25 MCG INHALE 1 PUFF)
  22. TRELEGY ELLIPTA [Concomitant]
     Active Substance: FLUTICASONE FUROATE\UMECLIDINIUM BROMIDE\VILANTEROL TRIFENATATE
     Dosage: 187.5 MICROGRAM, QD (100 MCG-62.5 MCG-25 MCG INHALE 1 PUFF)
  23. ALBUTEROL SULFATE [Concomitant]
     Active Substance: ALBUTEROL SULFATE
     Dosage: 90 MICROGRAM, Q4H (INHALE 2 PUFF)
  24. CHONDROITIN SULFATE (BOVINE)\GLUCOSAMINE HYDROCHLORIDE [Concomitant]
     Active Substance: CHONDROITIN SULFATE (BOVINE)\GLUCOSAMINE HYDROCHLORIDE
     Dosage: 900 MILLIGRAM (MAXIMUM STRENGTH 500 MG-400 MG CAPSULE )
     Route: 048
  25. PROAIR HFA [Concomitant]
     Active Substance: ALBUTEROL SULFATE
     Dosage: 90 MICROGRAM, Q4H ( INHALE 2 PUFF)
  26. SYMBICORT [Concomitant]
     Active Substance: BUDESONIDE\FORMOTEROL FUMARATE DIHYDRATE
     Dosage: 84.5 MICROGRAM, BID ( 80 MCG-4.5 MCG/ACTUATION HFA AEROSOL INHALER INHALE 2 PUFF)
  27. FLONASE [Concomitant]
     Active Substance: FLUTICASONE PROPIONATE
     Dosage: UNK
     Route: 065
  28. AUGMENTIN [Concomitant]
     Active Substance: AMOXICILLIN\CLAVULANATE POTASSIUM
     Dosage: UNK
     Route: 065
  29. FLAGYL [Concomitant]
     Active Substance: METRONIDAZOLE\METRONIDAZOLE HYDROCHLORIDE
     Dosage: UNK
     Route: 065
  30. SPIRIVA [Concomitant]
     Active Substance: TIOTROPIUM BROMIDE MONOHYDRATE
     Dosage: UNK
     Route: 065
  31. Artificial tears [Concomitant]
     Dosage: 1 DROP, BID
     Route: 047
  32. TOBRADEX [Concomitant]
     Active Substance: DEXAMETHASONE\TOBRAMYCIN
     Dosage: 1 DROP, TID (0 . 3-0 . 1% DROPS, SUSPENSION )
     Route: 047
  33. ZERVIATE [Concomitant]
     Active Substance: CETIRIZINE HYDROCHLORIDE
     Dosage: UNK UNK, BID

REACTIONS (63)
  - Deafness neurosensory [Not Recovered/Not Resolved]
  - Endocrine ophthalmopathy [Unknown]
  - Graves^ disease [Unknown]
  - Diverticulitis [Unknown]
  - Chronic kidney disease [Unknown]
  - Emotional distress [Unknown]
  - Anxiety [Unknown]
  - Discomfort [Unknown]
  - Product use complaint [Unknown]
  - Uterine leiomyoma [Unknown]
  - Arthritis [Unknown]
  - Bursitis [Unknown]
  - Plantar fasciitis [Unknown]
  - Sleep apnoea syndrome [Unknown]
  - Pulmonary mass [Unknown]
  - Glucose tolerance impaired [Unknown]
  - Spleen disorder [Unknown]
  - Diverticulum intestinal [Unknown]
  - Gastrooesophageal reflux disease [Unknown]
  - Hyperlipidaemia [Unknown]
  - Depression [Unknown]
  - Obstructive sleep apnoea syndrome [Unknown]
  - Essential hypertension [Unknown]
  - Bronchitis [Recovered/Resolved]
  - Rhinitis allergic [Unknown]
  - Seasonal allergy [Unknown]
  - Emphysema [Recovered/Resolved]
  - Chronic obstructive pulmonary disease [Unknown]
  - Bronchospasm [Recovered/Resolved]
  - Blood urine present [Recovered/Resolved]
  - Osteoarthritis [Unknown]
  - Lumbar spinal stenosis [Unknown]
  - Osteopenia [Unknown]
  - Atrial septal defect [Unknown]
  - Glucose tolerance impaired [Unknown]
  - Glycosylated haemoglobin increased [Unknown]
  - Obstructive airways disorder [Unknown]
  - Dry eye [Unknown]
  - Dry skin [Unknown]
  - Blood triglycerides increased [Unknown]
  - Blood cholesterol increased [Unknown]
  - Low density lipoprotein increased [Unknown]
  - Blood chloride decreased [Unknown]
  - Carbon dioxide increased [Unknown]
  - Blood creatinine increased [Unknown]
  - Glomerular filtration rate decreased [Unknown]
  - Back pain [Unknown]
  - Spinal osteoarthritis [Unknown]
  - Sciatica [Unknown]
  - Cough [Unknown]
  - Musculoskeletal stiffness [Unknown]
  - Blood pressure increased [Unknown]
  - Dizziness [Unknown]
  - Hypotension [Unknown]
  - Blood pressure systolic increased [Unknown]
  - Lethargy [Unknown]
  - Abdominal pain [Unknown]
  - Constipation [Unknown]
  - Urinary hesitation [Unknown]
  - Fatigue [Unknown]
  - Endometrial thickening [Unknown]
  - Renal disorder [Unknown]
  - Memory impairment [Unknown]

NARRATIVE: CASE EVENT DATE: 20121231
